FAERS Safety Report 19960696 (Version 1)
Quarter: 2021Q4

REPORT INFORMATION
  Report Type: Spontaneous
  Country: DE (occurrence: DE)
  Receive Date: 20211016
  Receipt Date: 20211016
  Transmission Date: 20220304
  Serious: Yes (Hospitalization, Other)
  Sender: FDA-Public Use
  Company Number: DE-MICRO LABS LIMITED-ML2021-02358

PATIENT
  Age: 72 Year
  Sex: Female

DRUGS (5)
  1. ACETAZOLAMIDE [Suspect]
     Active Substance: ACETAZOLAMIDE
  2. MANNITOL [Suspect]
     Active Substance: MANNITOL
  3. TIMOLOL [Suspect]
     Active Substance: TIMOLOL
  4. APRACLONIDINE [Suspect]
     Active Substance: APRACLONIDINE HYDROCHLORIDE
  5. PREDNISOLONE [Suspect]
     Active Substance: PREDNISOLONE

REACTIONS (2)
  - Choroidal effusion [Unknown]
  - Angle closure glaucoma [Unknown]
